FAERS Safety Report 10336093 (Version 2)
Quarter: 2014Q3

REPORT INFORMATION
  Report Type: Spontaneous
  Country: US (occurrence: US)
  Receive Date: 20140723
  Receipt Date: 20140723
  Transmission Date: 20150326
  Serious: No
  Sender: FDA-Public Use
  Company Number: US-BRISTOL-MYERS SQUIBB COMPANY-19730571

PATIENT
  Age: 80 Year
  Sex: Female
  Weight: 78 kg

DRUGS (20)
  1. COUMADIN [Suspect]
     Active Substance: WARFARIN SODIUM
     Indication: ATRIAL FIBRILLATION
     Dosage: 2.5 MG ONE DAY AND SPLITTING IT IN HALF ON OTHER DAYS.
     Route: 048
     Dates: start: 20091014, end: 20131002
  2. CALCIUM + VITAMIN D [Concomitant]
     Active Substance: CALCIUM\VITAMIN D
     Dosage: 1 DF:  CALCIUM 600+ VIT D 600-400 MG-UNIT?1 TAB
     Route: 048
     Dates: start: 20091203
  3. LIPOFLAVONOID [Concomitant]
     Active Substance: UNSPECIFIED INGREDIENT
     Dosage: 2 TABS.
     Route: 048
     Dates: start: 20120308
  4. TRIAMTERENE + HCTZ [Concomitant]
     Indication: CORONARY ARTERY DISEASE
     Dosage: 1 DF: 37.5-25 MG, ONE CAPUSLE
     Route: 048
     Dates: start: 20080716
  5. LOVASTATIN. [Concomitant]
     Active Substance: LOVASTATIN
     Indication: HYPERCHOLESTEROLAEMIA
     Dosage: ONE TAB AT BED TIME.
     Route: 048
     Dates: start: 20120305
  6. POTASSIUM CHLORIDE. [Concomitant]
     Active Substance: POTASSIUM CHLORIDE
     Indication: HYPOKALAEMIA
     Dosage: POTASSIUM CHLORIDE 10MEQ EXTENDED RELEASE, 2 CAPSULES.
     Route: 048
     Dates: start: 20080717
  7. ASPIRIN. [Suspect]
     Active Substance: ASPIRIN
     Dosage: 1 DF:1 TAB?28APR08-1OCT13
     Route: 048
     Dates: start: 20131014
  8. PRILOSEC [Concomitant]
     Active Substance: OMEPRAZOLE MAGNESIUM
     Dosage: CAPSULE, DELAYED RELEASE.
     Route: 048
     Dates: start: 20070813
  9. ULTRAM [Concomitant]
     Active Substance: TRAMADOL HYDROCHLORIDE
     Dosage: TABLET
     Route: 048
     Dates: start: 20080428
  10. ELIQUIS [Concomitant]
     Active Substance: APIXABAN
     Indication: ATRIAL FIBRILLATION
     Dosage: 1 DF:1 TAB OF 5 MG ELIQUIS
     Route: 048
     Dates: start: 20131001
  11. METOPROLOL SUCCINATE. [Concomitant]
     Active Substance: METOPROLOL SUCCINATE
     Indication: ESSENTIAL HYPERTENSION
     Dosage: 1 TAB, EXTENDED RELEASE.?11-NOV-2008.
     Route: 048
     Dates: start: 20080909
  12. BENZONATATE. [Concomitant]
     Active Substance: BENZONATATE
     Indication: RHINITIS ALLERGIC
     Dosage: ONE CAPSULE.
     Route: 048
     Dates: start: 20131014
  13. PROAIR HFA [Concomitant]
     Active Substance: ALBUTEROL SULFATE
     Indication: ASTHMA
     Dosage: 1 DF: 108 (90 BASE) MCG/ACT INHALATION AEROSOL SOLUTION, 2 PUFFS
     Route: 055
     Dates: start: 20131017
  14. FLUTICASONE PROPIONATE. [Concomitant]
     Active Substance: FLUTICASONE PROPIONATE
     Indication: RHINITIS ALLERGIC
     Dosage: 1 DF: 50 MCG/ACT NASAL SUSPENSION, 2 SPRAYS IN EACH NOSTRIL
     Route: 045
     Dates: start: 20130528
  15. MAGNESIUM [Concomitant]
     Active Substance: MAGNESIUM
     Dosage: MAGNESIUM 200MG TABS
     Route: 048
     Dates: start: 20120308
  16. BENZONATATE. [Concomitant]
     Active Substance: BENZONATATE
     Indication: COUGH
     Dosage: ONE CAPSULE.
     Route: 048
     Dates: start: 20131014
  17. TRIAMTERENE + HCTZ [Concomitant]
     Indication: HYPERCHOLESTEROLAEMIA
     Dosage: 1 DF: 37.5-25 MG, ONE CAPUSLE
     Route: 048
     Dates: start: 20080716
  18. AZITHROMYCIN [Concomitant]
     Active Substance: AZITHROMYCIN ANHYDROUS
     Indication: COUGH
     Dosage: 2 TABS DAY 1 THEN 1 TAB A DAY FOR 4 DAYS
     Route: 048
     Dates: start: 20131017
  19. ZYRTEC [Concomitant]
     Active Substance: CETIRIZINE HYDROCHLORIDE
     Indication: RHINITIS ALLERGIC
     Dosage: 1 CAPSULE.
     Route: 048
     Dates: start: 20131014
  20. LASIX [Concomitant]
     Active Substance: FUROSEMIDE
     Indication: ESSENTIAL HYPERTENSION
     Dosage: 1 DF:1 TAB?1/2 TAB BID:25JUL13-UNK
     Route: 048

REACTIONS (7)
  - Cough [Unknown]
  - Haemorrhage subcutaneous [Unknown]
  - Ecchymosis [Unknown]
  - Incorrect dose administered [Unknown]
  - Pain [Unknown]
  - Fall [Unknown]
  - Joint injury [Unknown]
